FAERS Safety Report 5453833-7 (Version None)
Quarter: 2007Q3

REPORT INFORMATION
  Report Type: 
  Country: None (occurrence: None)
  Receive Date: 20070917
  Receipt Date: 20070913
  Transmission Date: 20080115
  Serious: Yes (Death, Hospitalization)
  Sender: FDA-Public Use
  Company Number: A0681826A

PATIENT
  Age: 75 Year
  Sex: Female

DRUGS (3)
  1. TYKERB [Suspect]
     Indication: BREAST CANCER
     Dosage: 1TAB PER DAY
     Route: 048
     Dates: start: 20070315, end: 20070807
  2. XELODA [Suspect]
     Indication: BREAST CANCER
     Dosage: 3000MG PER DAY
     Route: 048
     Dates: end: 20070807
  3. DECADRON [Concomitant]

REACTIONS (2)
  - BRAIN NEOPLASM [None]
  - CONVULSION [None]
